FAERS Safety Report 4308805-2 (Version None)
Quarter: 2004Q1

REPORT INFORMATION
  Report Type: 
  Country: None (occurrence: None)
  Receive Date: 20040227
  Receipt Date: 20040217
  Transmission Date: 20041129
  Serious: Yes (Other)
  Sender: FDA-Public Use
  Company Number: US-JNJFOC-20031101675

PATIENT
  Age: 78 Year
  Sex: Male

DRUGS (6)
  1. DITROPAN XL [Suspect]
     Indication: DRUG USE FOR UNKNOWN INDICATION
     Dosage: 10 MG
     Dates: start: 20031001
  2. PLAVIX [Concomitant]
  3. DIABETA [Concomitant]
  4. ZYLOPRIM [Concomitant]
  5. ASPRIN (ACETYLSALICYLIC ACID) [Concomitant]
  6. VITAMIN E [Concomitant]

REACTIONS (2)
  - CEREBROVASCULAR ACCIDENT [None]
  - OEDEMA PERIPHERAL [None]
